FAERS Safety Report 5981722-8 (Version None)
Quarter: 2008Q4

REPORT INFORMATION
  Report Type: 
  Country: None (occurrence: None)
  Receive Date: 20081205
  Receipt Date: 20081201
  Transmission Date: 20090506
  Serious: Yes (Other)
  Sender: FDA-Public Use
  Company Number: CZ-ROXANE LABORATORIES, INC.-2008-RO-00304RO

PATIENT
  Age: 56 Year
  Sex: Female

DRUGS (7)
  1. TAMOXIFEN CITRATE [Suspect]
     Indication: HORMONE REPLACEMENT THERAPY
     Dosage: 20MG
  2. ACITRETIN [Suspect]
     Indication: PROPHYLAXIS
     Dosage: 50MG
  3. ACITRETIN [Suspect]
     Dosage: 30MG
  4. TRIAMCINOLONE [Suspect]
     Indication: PROPHYLAXIS
  5. LETROZOL [Concomitant]
     Indication: HORMONE REPLACEMENT THERAPY
     Dosage: 2.5MG
  6. DEXAMETHASONE [Concomitant]
     Indication: PROPHYLAXIS
  7. SYNDERMAN [Concomitant]
     Indication: PROPHYLAXIS

REACTIONS (7)
  - CHEST DISCOMFORT [None]
  - DIZZINESS [None]
  - DRUG INTERACTION [None]
  - ELECTROCARDIOGRAM QT PROLONGED [None]
  - FATIGUE [None]
  - ORTHOSTATIC HYPERTENSION [None]
  - SINUS BRADYCARDIA [None]
